FAERS Safety Report 5835729-1 (Version None)
Quarter: 2008Q3

REPORT INFORMATION
  Report Type: 
  Country: None (occurrence: None)
  Receive Date: 20080806
  Receipt Date: 20080730
  Transmission Date: 20090109
  Serious: Yes (Hospitalization)
  Sender: FDA-Public Use
  Company Number: DE-SANOFI-SYNTHELABO-F01200801253

PATIENT
  Sex: Male

DRUGS (7)
  1. METOPROLOL SUCCINATE FELODIPINE [Concomitant]
     Dosage: UNK
     Dates: start: 20030823
  2. DOXAZOSIN MESYLATE [Concomitant]
     Dosage: UNK
     Dates: start: 20010501
  3. BENAZEPRIL HYDROCHLORIDE [Concomitant]
     Dosage: UNK
     Dates: start: 20041001
  4. CANDESARTAN CILEXETIL [Concomitant]
     Dosage: UNK
     Dates: start: 20030801
  5. OPIPRAMOL [Concomitant]
     Dosage: UNK
     Dates: start: 20030801
  6. BICALUTAMIDE [Suspect]
     Indication: PROSTATE CANCER
     Dosage: 50 MG
     Route: 048
     Dates: start: 20061207, end: 20070106
  7. ELIGARD [Suspect]
     Indication: PROSTATE CANCER
     Dosage: 22.5 MG
     Route: 058
     Dates: start: 20061207, end: 20070307

REACTIONS (1)
  - METASTASES TO LIVER [None]
